FAERS Safety Report 15204153 (Version 2)
Quarter: 2018Q3

REPORT INFORMATION
  Report Type: Report from Study
  Country: FR (occurrence: FR)
  Receive Date: 20180726
  Receipt Date: 20180809
  Transmission Date: 20181010
  Serious: Yes (Other)
  Sender: FDA-Public Use
  Company Number: FR-GLAXOSMITHKLINE-FR2018GSK129409

PATIENT
  Age: 45 Year
  Sex: Male

DRUGS (1)
  1. MEPOLIZUMAB [Suspect]
     Active Substance: MEPOLIZUMAB
     Indication: ASTHMA
     Dosage: UNK
     Dates: start: 20160201, end: 20170102

REACTIONS (3)
  - Asthma [Unknown]
  - Pneumonia [Recovered/Resolved]
  - Treatment failure [Unknown]

NARRATIVE: CASE EVENT DATE: 20160606
